FAERS Safety Report 9208228 (Version 1)
Quarter: 2013Q2

REPORT INFORMATION
  Report Type: Spontaneous
  Country: US (occurrence: US)
  Receive Date: 20130403
  Receipt Date: 20130403
  Transmission Date: 20140414
  Serious: Yes (Other)
  Sender: FDA-Public Use
  Company Number: US-TEVA-396025USA

PATIENT
  Sex: Female
  Weight: 53.57 kg

DRUGS (1)
  1. PLAN B [Suspect]
     Indication: POST COITAL CONTRACEPTION
     Route: 048
     Dates: start: 2008, end: 2008

REACTIONS (3)
  - Abortion induced [Recovered/Resolved]
  - Pregnancy after post coital contraception [Recovered/Resolved]
  - Drug ineffective [Recovered/Resolved]
